FAERS Safety Report 19856054 (Version 1)
Quarter: 2021Q3

REPORT INFORMATION
  Report Type: Spontaneous
  Country: US (occurrence: US)
  Receive Date: 20210920
  Receipt Date: 20210920
  Transmission Date: 20211014
  Serious: Yes (Hospitalization)
  Sender: FDA-Public Use
  Company Number: None

PATIENT
  Age: 81 Year
  Sex: Male

DRUGS (1)
  1. HYDROXYUREA. [Suspect]
     Active Substance: HYDROXYUREA
     Indication: NEOPLASM MALIGNANT
     Route: 048
     Dates: start: 20180730

REACTIONS (1)
  - Cervical vertebral fracture [None]

NARRATIVE: CASE EVENT DATE: 20210401
